FAERS Safety Report 8432805-4 (Version None)
Quarter: 2012Q2

REPORT INFORMATION
  Report Type: 
  Country: None (occurrence: None)
  Receive Date: 20120613
  Receipt Date: 20120605
  Transmission Date: 20120825
  Serious: Yes (Other)
  Sender: FDA-Public Use
  Company Number: DE-B.I. PHARMACEUTICALS,INC./RIDGEFIELD-2012-EU-03014GD

PATIENT
  Age: 82 Year
  Sex: Female
  Weight: 61 kg

DRUGS (11)
  1. QUETIAPINE [Suspect]
     Indication: MENTAL DISORDER
     Dosage: 300 MG
  2. DONEPEZIL HCL [Suspect]
     Indication: MENTAL DISORDER
     Dosage: 10 MG
  3. VENLAFAXINE [Suspect]
     Indication: MENTAL DISORDER
     Dosage: 75 MG
  4. LEVOTHYROXINE SODIUM [Concomitant]
     Dosage: 25 MCG
  5. PANTOPRAZOLE [Concomitant]
     Dosage: 40 MG
  6. DONEPEZIL HCL [Suspect]
     Dosage: 5 MG
  7. CLONIDINE [Suspect]
  8. KETAMINE HCL [Suspect]
     Indication: ANAESTHESIA
     Dosage: 20 MG
  9. QUETIAPINE [Suspect]
     Dosage: 150 MG
  10. SUCCINYLCHOLINE CHLORIDE [Concomitant]
     Indication: HYPOTONIA
     Dosage: 10 MG
  11. TORSEMIDE [Concomitant]
     Dosage: 5 MG

REACTIONS (2)
  - CARDIAC ARREST [None]
  - RHYTHM IDIOVENTRICULAR [None]
